FAERS Safety Report 5390977-2 (Version None)
Quarter: 2007Q3

REPORT INFORMATION
  Report Type: 
  Country: None (occurrence: None)
  Receive Date: 20070716
  Receipt Date: 20051112
  Transmission Date: 20080115
  Serious: Yes (Other)
  Sender: FDA-Public Use
  Company Number: MPS1-10451

PATIENT
  Age: 16 Year
  Sex: Female

DRUGS (1)
  1. ALDURAZYME [Suspect]
     Indication: MUCOPOLYSACCHARIDOSIS I
     Dates: start: 20050101

REACTIONS (7)
  - BLINDNESS UNILATERAL [None]
  - CHOROIDAL NEOVASCULARISATION [None]
  - HEADACHE [None]
  - METAMORPHOPSIA [None]
  - PHOTOSENSITIVITY REACTION [None]
  - RETINAL DETACHMENT [None]
  - SCOTOMA [None]
